FAERS Safety Report 18566131 (Version 1)
Quarter: 2020Q4

REPORT INFORMATION
  Report Type: Spontaneous
  Country: US (occurrence: US)
  Receive Date: 20201201
  Receipt Date: 20201201
  Transmission Date: 20210114
  Serious: No
  Sender: FDA-Public Use
  Company Number: US-ELI_LILLY_AND_COMPANY-US202011013130

PATIENT
  Age: 79 Year
  Sex: Female

DRUGS (1)
  1. BASAGLAR [Suspect]
     Active Substance: INSULIN GLARGINE
     Indication: BLOOD GLUCOSE INCREASED
     Dosage: 14 U, EACH MORNING
     Route: 058
     Dates: start: 20201113

REACTIONS (2)
  - Accidental underdose [Unknown]
  - Visual impairment [Unknown]

NARRATIVE: CASE EVENT DATE: 20201124
